FAERS Safety Report 8024703-5 (Version None)
Quarter: 2012Q1

REPORT INFORMATION
  Report Type: 
  Country: None (occurrence: None)
  Receive Date: 20120105
  Receipt Date: 20111229
  Transmission Date: 20120608
  Serious: No
  Sender: FDA-Public Use
  Company Number: US-B.I. PHARMACEUTICALS,INC./RIDGEFIELD-2012-BP-00011BP

PATIENT
  Sex: Female

DRUGS (14)
  1. SPIRIVA [Suspect]
     Indication: CHRONIC OBSTRUCTIVE PULMONARY DISEASE
     Dosage: 18 MCG
     Route: 055
     Dates: start: 20100601
  2. SPIRIVA [Suspect]
     Route: 048
     Dates: start: 20110601, end: 20111227
  3. SYNTHROID [Concomitant]
     Indication: HYPOTHYROIDISM
     Dosage: 50 MG
     Route: 048
  4. MULTI-VITAMIN [Concomitant]
     Indication: PROPHYLAXIS
     Route: 048
  5. CHROMAX PLUS [Concomitant]
     Indication: SUPPLEMENTATION THERAPY
     Dosage: 500 MG
     Route: 048
  6. ADVAIR DISKUS 500/50 [Concomitant]
     Indication: CHRONIC OBSTRUCTIVE PULMONARY DISEASE
     Dosage: 2 PUF
     Route: 055
  7. DIOVAN [Concomitant]
     Indication: CARDIAC FAILURE
     Dosage: 80 MG
     Route: 048
  8. CLARINEX [Concomitant]
     Indication: HYPERSENSITIVITY
     Dosage: 10 MG
     Route: 048
  9. METFORMIN HCL [Concomitant]
     Indication: DIABETES MELLITUS
     Dosage: 100 MG
     Route: 048
  10. NEURONTIN [Concomitant]
     Indication: NEUROPATHY PERIPHERAL
     Dosage: 600 MG
     Route: 048
  11. CRESTOR [Concomitant]
     Indication: HYPERLIPIDAEMIA
     Dosage: 10 MG
     Route: 048
  12. VITAMIN D [Concomitant]
     Indication: PROPHYLAXIS
     Route: 048
  13. PROAIR HFA [Concomitant]
     Indication: CHRONIC OBSTRUCTIVE PULMONARY DISEASE
     Route: 055
  14. VICODIN [Concomitant]
     Indication: PAIN
     Route: 048

REACTIONS (2)
  - INCORRECT ROUTE OF DRUG ADMINISTRATION [None]
  - WHEEZING [None]
